FAERS Safety Report 4616757-0 (Version None)
Quarter: 2005Q2

REPORT INFORMATION
  Report Type: 
  Country: None (occurrence: None)
  Receive Date: 20050311
  Receipt Date: 20041216
  Transmission Date: 20051028
  Serious: Yes (Hospitalization)
  Sender: FDA-Public Use
  Company Number: 2004-00944

PATIENT
  Age: 56 Year
  Sex: Male
  Weight: 92.6 kg

DRUGS (6)
  1. VELCADE [Suspect]
     Indication: MULTIPLE MYELOMA
     Dosage: 2.70 MG, INTRAVENOUS
     Route: 042
     Dates: start: 20041109, end: 20041203
  2. ACETYLSALICYLIC ACID SRT [Concomitant]
  3. CELEBREX [Concomitant]
  4. DECADRON [Concomitant]
  5. LIPITOR [Concomitant]
  6. LISINOPRIL [Concomitant]

REACTIONS (2)
  - ABDOMINAL DISCOMFORT [None]
  - ILEUS PARALYTIC [None]
